FAERS Safety Report 16570745 (Version 1)
Quarter: 2019Q3

REPORT INFORMATION
  Report Type: Spontaneous
  Country: US (occurrence: US)
  Receive Date: 20190531
  Receipt Date: 20190531
  Transmission Date: 20191004
  Serious: No
  Sender: FDA-Public Use
  Company Number: None

PATIENT
  Sex: Female
  Weight: 72.57 kg

DRUGS (8)
  1. DUPIXENT [Suspect]
     Active Substance: DUPILUMAB
     Indication: PRURITUS GENERALISED
     Dosage: 1-SHOT, 2 A MONTH, INJECTION ON THE SKIN
     Route: 058
     Dates: start: 201901, end: 201904
  2. AZOPT [Concomitant]
     Active Substance: BRINZOLAMIDE
  3. METOPROLOL. [Suspect]
     Active Substance: METOPROLOL
  4. LATANOPROST. [Concomitant]
     Active Substance: LATANOPROST
  5. VITAMIN D [Concomitant]
     Active Substance: VITAMIN D NOS
  6. LOW DOSE ASPIRIN [Concomitant]
     Active Substance: ASPIRIN
  7. ROSUVASTATIN. [Concomitant]
     Active Substance: ROSUVASTATIN
  8. FISH OIL [Concomitant]
     Active Substance: FISH OIL

REACTIONS (7)
  - Injection site infection [None]
  - Condition aggravated [None]
  - Vision blurred [None]
  - Swelling face [None]
  - Hypertension [None]
  - Skin disorder [None]
  - Madarosis [None]
